FAERS Safety Report 9900700 (Version 1)
Quarter: 2014Q1

REPORT INFORMATION
  Report Type: Report from Study
  Country: US (occurrence: US)
  Receive Date: 20140217
  Receipt Date: 20140217
  Transmission Date: 20141002
  Serious: Yes (Other)
  Sender: FDA-Public Use
  Company Number: US-ROCHE-1350477

PATIENT
  Sex: Female
  Weight: 90.8 kg

DRUGS (12)
  1. LUCENTIS [Suspect]
     Indication: MACULAR DEGENERATION
     Dosage: 10/FEB-2014
     Route: 050
  2. GLIPIZIDE [Concomitant]
     Route: 065
  3. PRAVASTATIN SODIUM [Concomitant]
     Route: 065
  4. LEVOTHYROXINE SODIUM [Concomitant]
     Route: 065
  5. FUROSEMIDE [Concomitant]
     Route: 065
  6. JANUVIA [Concomitant]
     Dosage: 2 TABLETS
     Route: 065
  7. HYDROCODONE/ACETAMINOPHEN [Concomitant]
     Dosage: 5-500 MG
     Route: 065
  8. ASPIRIN [Concomitant]
     Route: 065
  9. HYDROXYZINE HCL [Concomitant]
     Route: 065
  10. GABAPENTIN [Concomitant]
     Route: 065
  11. CITALOPRAM HYDROBROMIDE [Concomitant]
     Route: 065
  12. MELOXICAM [Concomitant]
     Route: 065

REACTIONS (5)
  - Blindness unilateral [Unknown]
  - Metamorphopsia [Unknown]
  - Visual impairment [Unknown]
  - Vision blurred [Unknown]
  - Diplopia [Unknown]
